FAERS Safety Report 23286063 (Version 2)
Quarter: 2024Q1

REPORT INFORMATION
  Report Type: Spontaneous
  Country: FR (occurrence: FR)
  Receive Date: 20231212
  Receipt Date: 20240205
  Transmission Date: 20240410
  Serious: Yes (Other)
  Sender: FDA-Public Use
  Company Number: FR-HORIZON THERAPEUTICS-HZN-2023-010427

PATIENT

DRUGS (4)
  1. UPLIZNA [Suspect]
     Active Substance: INEBILIZUMAB-CDON
     Indication: Neuromyelitis optica spectrum disorder
     Dosage: 300 MG (3 VIALS OF 100 MG), FIRST INFUSION
     Route: 042
     Dates: start: 20221010
  2. UPLIZNA [Suspect]
     Active Substance: INEBILIZUMAB-CDON
     Dosage: 300 MG, SECOND INFUSION
     Route: 042
     Dates: start: 20221024
  3. UPLIZNA [Suspect]
     Active Substance: INEBILIZUMAB-CDON
     Dosage: 300 MG, THIRD INFUSION
     Route: 042
     Dates: start: 202305
  4. UPLIZNA [Suspect]
     Active Substance: INEBILIZUMAB-CDON
     Dosage: 300 MG
     Route: 042
     Dates: start: 202311

REACTIONS (1)
  - Hypogammaglobulinaemia [Not Recovered/Not Resolved]

NARRATIVE: CASE EVENT DATE: 20230501
